FAERS Safety Report 9642787 (Version 2)
Quarter: 2013Q4

REPORT INFORMATION
  Report Type: Spontaneous
  Country: IT (occurrence: IT)
  Receive Date: 20131024
  Receipt Date: 20131213
  Transmission Date: 20140711
  Serious: Yes (Hospitalization)
  Sender: FDA-Public Use
  Company Number: IT-SA-2013SA103397

PATIENT
  Age: 83 Year
  Sex: Male

DRUGS (10)
  1. PLAVIX [Suspect]
     Indication: THROMBOSIS PROPHYLAXIS
     Route: 048
     Dates: start: 20121101
  2. ASA [Suspect]
     Indication: ISCHAEMIC CARDIOMYOPATHY
     Route: 048
     Dates: start: 20121101, end: 20130830
  3. SERTRALINE HYDROCHLORIDE [Concomitant]
  4. PANTOPRAZOLE SODIUM [Concomitant]
  5. FUROSEMIDE [Concomitant]
  6. AMIODARONE HYDROCHLORIDE [Concomitant]
  7. METFORMIN HYDROCHLORIDE [Concomitant]
     Indication: TYPE 2 DIABETES MELLITUS
  8. TARDYFERON [Concomitant]
     Dosage: STRENGTH: 80 MG
  9. SPIRIVA [Concomitant]
  10. ALIFLUS [Concomitant]
     Dosage: STRENGTH: 18 MCG

REACTIONS (2)
  - Gastritis [Recovering/Resolving]
  - Anaemia [Recovering/Resolving]
